FAERS Safety Report 4549257-7 (Version None)
Quarter: 2005Q1

REPORT INFORMATION
  Report Type: 
  Country: None (occurrence: None)
  Receive Date: 20041230
  Receipt Date: 20040527
  Transmission Date: 20050727
  Serious: Yes (Death)
  Sender: FDA-Public Use
  Company Number: 04-05-0778

PATIENT
  Age: 46 Year
  Sex: Male
  Weight: 108.4097 kg

DRUGS (14)
  1. CLOZAPINE [Suspect]
     Indication: BIPOLAR DISORDER
     Dosage: 325MG BID ORAL
     Route: 048
     Dates: start: 19990401, end: 20040517
  2. CLOZAPINE [Suspect]
     Indication: SCHIZOAFFECTIVE DISORDER
     Dosage: 325MG BID ORAL
     Route: 048
     Dates: start: 19990401, end: 20040517
  3. CITALOPRAM [Concomitant]
  4. IBUPROFEN [Concomitant]
  5. L-THYROXIN [Concomitant]
  6. GEMFIBROZIL [Concomitant]
  7. FISH OIL [Concomitant]
  8. DIVALPROEX SODIUM [Concomitant]
  9. MULTI-VITAMINS [Concomitant]
  10. DOCUSATE CALCIUM [Concomitant]
  11. MILK OF MAGNESIA [Concomitant]
  12. CLOTRIMAZOLE [Concomitant]
  13. ERYTHROMYCIN [Concomitant]
  14. TETRAHYDROZOLINE [Concomitant]

REACTIONS (1)
  - UNEVALUABLE EVENT [None]
